FAERS Safety Report 4315087-4 (Version None)
Quarter: 2004Q1

REPORT INFORMATION
  Report Type: 
  Country: None (occurrence: None)
  Receive Date: 20040310
  Receipt Date: 20040224
  Transmission Date: 20041129
  Serious: Yes (Hospitalization)
  Sender: FDA-Public Use
  Company Number: FR-ROCHE-359595

PATIENT
  Age: 62 Year
  Sex: Male
  Weight: 62 kg

DRUGS (2)
  1. PEG-INTERFERON ALFA 2A (RO 25-8310) [Suspect]
     Dosage: FORMULATION: INJECTION.
     Route: 058
     Dates: start: 20040203
  2. ADEFOVIR DIPOVIXIL [Suspect]
     Route: 048
     Dates: start: 20020715

REACTIONS (3)
  - ACCIDENT [None]
  - LOWER LIMB FRACTURE [None]
  - NERVOUSNESS [None]
